FAERS Safety Report 13620088 (Version 2)
Quarter: 2017Q2

REPORT INFORMATION
  Report Type: Report from Study
  Country: BR (occurrence: BR)
  Receive Date: 20170607
  Receipt Date: 20170622
  Transmission Date: 20170830
  Serious: Yes (Other)
  Sender: FDA-Public Use
  Company Number: PHHY2017BR083593

PATIENT
  Sex: Female
  Weight: 40 kg

DRUGS (2)
  1. RITALINA [Suspect]
     Active Substance: METHYLPHENIDATE HYDROCHLORIDE
     Indication: ATTENTION DEFICIT/HYPERACTIVITY DISORDER
     Dosage: 1 DF, TID (ONE AT 7:00 IN THE MORNING,)
     Route: 048
     Dates: start: 200705
  2. COBAVITAL [Suspect]
     Active Substance: COBAMAMIDE\CYPROHEPTADINE HYDROCHLORIDE
     Indication: DECREASED APPETITE
     Dosage: 1 DF, QD (BEFORE MEAL) (LONG TIME AGO)
     Route: 065

REACTIONS (8)
  - Somnolence [Unknown]
  - Body height decreased [Unknown]
  - Nausea [Unknown]
  - Decreased appetite [Unknown]
  - Growth retardation [Unknown]
  - Eating disorder [Unknown]
  - Headache [Unknown]
  - Weight decreased [Unknown]
